FAERS Safety Report 4836558-8 (Version None)
Quarter: 2005Q4

REPORT INFORMATION
  Report Type: 
  Country: None (occurrence: None)
  Receive Date: 20051121
  Receipt Date: 20051111
  Transmission Date: 20060501
  Serious: Yes (Other)
  Sender: FDA-Public Use
  Company Number: 2005155157

PATIENT
  Age: 65 Year
  Sex: Female

DRUGS (5)
  1. LIPITOR [Suspect]
     Indication: HYPERCHOLESTEROLAEMIA
     Dosage: 40 MG (40 MG, 1 IN 1 D), ORAL
     Route: 048
  2. ALL OTHER THERAPEUTIC PRODUCTS (ALL OTHER THERAPEUTIC PRODUCTS) [Concomitant]
  3. ZANIDIP (LERCANIDIPINE HYDROCHLORIDE) [Concomitant]
  4. PANTOPRAZOLE SODIUM [Concomitant]
  5. AVANZA (MIRTAZAPINE) [Concomitant]

REACTIONS (1)
  - APHASIA [None]
